FAERS Safety Report 4952266-7 (Version None)
Quarter: 2006Q1

REPORT INFORMATION
  Report Type: 
  Country: None (occurrence: None)
  Receive Date: 20060317
  Receipt Date: 20060301
  Transmission Date: 20060701
  Serious: Yes (Hospitalization)
  Sender: FDA-Public Use
  Company Number: JP200603000683

PATIENT
  Age: 67 Year
  Sex: Female

DRUGS (1)
  1. GEMZAR [Suspect]
     Indication: PANCREATIC CARCINOMA
     Dosage: INTRAVENOUS
     Route: 042
     Dates: start: 20040129

REACTIONS (5)
  - AGITATION [None]
  - COMA [None]
  - DIABETES MELLITUS INADEQUATE CONTROL [None]
  - EXCITABILITY [None]
  - HYPERAMMONAEMIA [None]
